FAERS Safety Report 5224215-8 (Version None)
Quarter: 2007Q1

REPORT INFORMATION
  Report Type: 
  Country: None (occurrence: None)
  Receive Date: 20070130
  Receipt Date: 20070117
  Transmission Date: 20070707
  Serious: Yes (Hospitalization)
  Sender: FDA-Public Use
  Company Number: US-ELI_LILLY_AND_COMPANY-US200611005535

PATIENT
  Age: 75 Year
  Sex: Female

DRUGS (12)
  1. FORTEO [Suspect]
     Indication: OSTEOPOROSIS
     Dosage: UNK, UNK
     Dates: start: 20050701, end: 20061122
  2. PREDNISONE [Concomitant]
  3. EFFEXOR [Concomitant]
  4. ZOCOR [Concomitant]
  5. XANAX                                   /USA/ [Concomitant]
  6. ZANTAC [Concomitant]
  7. HYDROCHLOROTHIAZIDE [Concomitant]
  8. ALLEGRA [Concomitant]
  9. POTASSIUM CHLORIDE [Concomitant]
  10. PREMPRO [Concomitant]
  11. CARAFATE                                /USA/ [Concomitant]
  12. DIPHENHYDRAMINE HCL [Concomitant]

REACTIONS (2)
  - GASTRIC ULCER HAEMORRHAGE [None]
  - PHARYNGOLARYNGEAL PAIN [None]
